FAERS Safety Report 7951765-3 (Version None)
Quarter: 2011Q4

REPORT INFORMATION
  Report Type: 
  Country: None (occurrence: None)
  Receive Date: 20111201
  Receipt Date: 20111124
  Transmission Date: 20120403
  Serious: Yes (Hospitalization)
  Sender: FDA-Public Use
  Company Number: GR-AMGEN-GRCSP2011062361

PATIENT
  Age: 28 Year
  Sex: Female
  Weight: 58 kg

DRUGS (1)
  1. GRANULOKINE [Suspect]
     Indication: FEBRILE NEUTROPENIA
     Dosage: 300 MUG, UNK
     Route: 058
     Dates: start: 20110207, end: 20110207

REACTIONS (3)
  - EYELID OEDEMA [None]
  - FACE OEDEMA [None]
  - DYSPHAGIA [None]
